FAERS Safety Report 7491588-5 (Version None)
Quarter: 2011Q2

REPORT INFORMATION
  Report Type: 
  Country: None (occurrence: None)
  Receive Date: 20110519
  Receipt Date: 20110509
  Transmission Date: 20111010
  Serious: Yes (Other)
  Sender: FDA-Public Use
  Company Number: DE-NOVOPROD-328119

PATIENT
  Age: 83 Year
  Sex: Female

DRUGS (4)
  1. AMINOCAPROIC ACID [Suspect]
     Indication: PROCOAGULANT THERAPY
     Dosage: 50 MG/KG, LOADING DOSE
     Route: 042
  2. NOVOSEVEN [Suspect]
     Indication: HAEMORRHAGE
  3. AMINOCAPROIC ACID IN PLASTIC CONTAINER [Suspect]
     Dosage: 25 MG/KG, PER HOUR
     Route: 042
  4. AMINOCAPROIC ACID [Suspect]
     Dosage: 5 G, IN THE EXTRACORPORAL CIRCUIT
     Route: 042

REACTIONS (1)
  - CONVULSION [None]
